FAERS Safety Report 4553396-4 (Version None)
Quarter: 2005Q1

REPORT INFORMATION
  Report Type: 
  Country: None (occurrence: None)
  Receive Date: 20050112
  Receipt Date: 20050104
  Transmission Date: 20050727
  Serious: Yes (Hospitalization)
  Sender: FDA-Public Use
  Company Number: 200510017BFR

PATIENT
  Age: 74 Year
  Sex: Female
  Weight: 52 kg

DRUGS (4)
  1. CIFLOX (CIFPROFLOXACIN) [Suspect]
     Dosage: 1000 MG, TOTAL DAILY, ORAL
     Route: 048
     Dates: start: 20040727
  2. FURADOINE (NITROFURANTOIN) [Suspect]
     Indication: CYSTOCELE
     Dosage: ORAL
     Route: 048
     Dates: start: 20040707, end: 20040727
  3. IMOVANE [Concomitant]
  4. DEROXAT [Concomitant]

REACTIONS (8)
  - ANOREXIA [None]
  - ASTHENIA [None]
  - COUGH [None]
  - GENERAL PHYSICAL HEALTH DETERIORATION [None]
  - PURPURA [None]
  - PYREXIA [None]
  - RALES [None]
  - RASH MACULAR [None]
